FAERS Safety Report 4682227-7 (Version None)
Quarter: 2005Q2

REPORT INFORMATION
  Report Type: 
  Country: None (occurrence: None)
  Receive Date: 20050606
  Receipt Date: 20050510
  Transmission Date: 20051028
  Serious: Yes (Other)
  Sender: FDA-Public Use
  Company Number: PHBS2005NL06580

PATIENT
  Age: 47 Year
  Sex: Female

DRUGS (1)
  1. CALCITONINE-SANDOZ [Suspect]

REACTIONS (6)
  - BLISTER [None]
  - ECZEMA [None]
  - FEELING HOT [None]
  - NAUSEA [None]
  - RASH [None]
  - SKIN BURNING SENSATION [None]
